FAERS Safety Report 21324065 (Version 1)
Quarter: 2022Q3

REPORT INFORMATION
  Report Type: Spontaneous
  Country: CN (occurrence: CN)
  Receive Date: 20220912
  Receipt Date: 20220912
  Transmission Date: 20221026
  Serious: Yes (Other)
  Sender: FDA-Public Use
  Company Number: CN-PFIZER INC-PV202200060133

PATIENT
  Age: 4 Year
  Sex: Female
  Weight: 14.1 kg

DRUGS (9)
  1. METHOTREXATE SODIUM [Suspect]
     Active Substance: METHOTREXATE SODIUM
     Indication: Leukaemia
     Dosage: 3 G, 1X/DAY
     Route: 042
     Dates: start: 20220822, end: 20220822
  2. DEXAMETHASONE SODIUM PHOSPHATE [Suspect]
     Active Substance: DEXAMETHASONE SODIUM PHOSPHATE
     Indication: Leukaemia
     Dosage: 12.5 MG, 1X/DAY
     Route: 041
     Dates: start: 20220822, end: 20220826
  3. PEGASPARGASE [Suspect]
     Active Substance: PEGASPARGASE
     Indication: Leukaemia
     Dosage: 2.1 ML, 1X/DAY
     Route: 030
     Dates: start: 20220827, end: 20220827
  4. IFOSFAMIDE [Suspect]
     Active Substance: IFOSFAMIDE
     Indication: Leukaemia
     Dosage: 0.5 G, 2X/DAY
     Route: 041
     Dates: start: 20220823, end: 20220825
  5. DAUNORUBICIN HYDROCHLORIDE [Suspect]
     Active Substance: DAUNORUBICIN HYDROCHLORIDE
     Indication: Leukaemia
     Dosage: 19 MG, 1X/DAY
     Route: 041
     Dates: start: 20220826, end: 20220826
  6. VINDESINE SULFATE [Suspect]
     Active Substance: VINDESINE SULFATE
     Indication: Leukaemia
     Dosage: 1.9 MG, 2X/DAY
     Route: 042
     Dates: start: 20220822, end: 20220827
  7. SODIUM CHLORIDE [Concomitant]
     Active Substance: SODIUM CHLORIDE
     Indication: Vehicle solution use
     Dosage: 3 ML, 2X/DAY
     Route: 042
     Dates: start: 20220822, end: 20220826
  8. DEXTROSE [Concomitant]
     Active Substance: DEXTROSE
     Indication: Vehicle solution use
     Dosage: 250 ML, 2X/DAY
     Route: 041
     Dates: start: 20220823, end: 20220825
  9. DEXTROSE [Concomitant]
     Active Substance: DEXTROSE
     Indication: Vehicle solution use
     Dosage: 250 ML, 2X/DAY
     Route: 041
     Dates: start: 20220823, end: 20220825

REACTIONS (2)
  - Cholestasis [Recovering/Resolving]
  - Hepatic function abnormal [Recovering/Resolving]

NARRATIVE: CASE EVENT DATE: 20220828
